FAERS Safety Report 15193895 (Version 1)
Quarter: 2018Q3

REPORT INFORMATION
  Report Type: Spontaneous
  Country: US (occurrence: US)
  Receive Date: 20180725
  Receipt Date: 20180725
  Transmission Date: 20181010
  Serious: Yes (Hospitalization, Other)
  Sender: FDA-Public Use
  Company Number: US-BAYER-2018-138372

PATIENT
  Age: 36 Year
  Sex: Female

DRUGS (1)
  1. ACETYLSALICYLIC ACID (} 100 MG) [Suspect]
     Active Substance: ASPIRIN
     Indication: SUICIDE ATTEMPT

REACTIONS (9)
  - Toxicity to various agents [Recovered/Resolved]
  - Tinnitus [Recovered/Resolved]
  - Metabolic acidosis [Recovered/Resolved]
  - Intentional overdose [Recovered/Resolved]
  - Exposure during pregnancy [Unknown]
  - Suicide attempt [None]
  - Vomiting [Recovered/Resolved]
  - Respiratory alkalosis [Recovered/Resolved]
  - Nausea [Recovered/Resolved]
